FAERS Safety Report 9143209 (Version 1)
Quarter: 2013Q1

REPORT INFORMATION
  Report Type: Spontaneous
  Country: US (occurrence: US)
  Receive Date: 20130306
  Receipt Date: 20130306
  Transmission Date: 20140127
  Serious: No
  Sender: FDA-Public Use
  Company Number: US-ENDO PHARMACEUTICALS INC.-OPER20100229

PATIENT
  Sex: Male

DRUGS (5)
  1. OPANA ER 20MG [Suspect]
     Indication: BACK PAIN
     Route: 048
     Dates: start: 201010
  2. OPANA [Concomitant]
     Indication: BREAKTHROUGH PAIN
     Dosage: 5 MG Q4-6H PRN
     Dates: start: 201010
  3. OPANA [Concomitant]
     Indication: BACK PAIN
  4. DILAUDID [Concomitant]
     Indication: BACK PAIN
     Route: 065
  5. DILAUDID [Concomitant]
     Indication: BREAKTHROUGH PAIN

REACTIONS (3)
  - Cluster headache [Not Recovered/Not Resolved]
  - Migraine [Not Recovered/Not Resolved]
  - Drug effect incomplete [Not Recovered/Not Resolved]
